FAERS Safety Report 10373886 (Version 1)
Quarter: 2014Q1

REPORT INFORMATION
  Report Type: Spontaneous
  Country: US (occurrence: None)
  Receive Date: 20140306
  Receipt Date: 20140306
  Transmission Date: 20141002
  Serious: Yes (Disabling, Other)
  Sender: FDA-Public Use
  Company Number: 163-21880-13074214

PATIENT
  Age: 83 Year
  Sex: Female

DRUGS (6)
  1. REVLIMID [Suspect]
     Indication: MYELODYSPLASTIC SYNDROME
     Dosage: 10 MG, M-F, PO
     Route: 048
     Dates: start: 201301
  2. COUMADIN (WARFARIN SODIUM) (UNKNOWN) [Concomitant]
  3. AMBIEN (ZOLPIDEM TARTRATE) (UNKNOWN) [Concomitant]
  4. SOLATOL (SOLATOL HYDROCHLORIDE) (UNKNOWN) [Concomitant]
  5. TRAZODONE (TRAZODONE) (UNKNOWN) (TRAZODONE) [Concomitant]
  6. VICODIN (VICODIN) (UNKNOWN) [Concomitant]

REACTIONS (2)
  - Platelet count decreased [None]
  - Neutropenia [None]
